FAERS Safety Report 8392168-X (Version None)
Quarter: 2012Q2

REPORT INFORMATION
  Report Type: 
  Country: None (occurrence: None)
  Receive Date: 20120529
  Receipt Date: 20120521
  Transmission Date: 20120825
  Serious: Yes (Hospitalization)
  Sender: FDA-Public Use
  Company Number: US-ROCHE-1071244

PATIENT
  Age: 63 Year
  Sex: Female
  Weight: 68.1 kg

DRUGS (2)
  1. XELODA [Suspect]
     Indication: BREAST CANCER METASTATIC
     Route: 048
     Dates: start: 20120309, end: 20120323
  2. CARAFATE [Concomitant]
     Indication: MUSCLE SPASMS
     Route: 048
     Dates: start: 20120311, end: 20120323

REACTIONS (6)
  - ILL-DEFINED DISORDER [None]
  - DIZZINESS [None]
  - CHOKING SENSATION [None]
  - DIARRHOEA [None]
  - HEADACHE [None]
  - MUSCLE SPASMS [None]
